FAERS Safety Report 23931748 (Version 4)
Quarter: 2024Q2

REPORT INFORMATION
  Report Type: Report from Study
  Country: US (occurrence: US)
  Receive Date: 20240603
  Receipt Date: 20240626
  Transmission Date: 20240715
  Serious: Yes (Hospitalization, Other)
  Sender: FDA-Public Use
  Company Number: US-UCBSA-2024021092

PATIENT
  Age: 79 Year
  Sex: Male

DRUGS (1)
  1. ROZANOLIXIZUMAB [Suspect]
     Active Substance: ROZANOLIXIZUMAB
     Indication: Myasthenia gravis
     Dosage: UNK, WEEKLY (QW)
     Route: 058
     Dates: end: 20240510

REACTIONS (22)
  - Myasthenia gravis crisis [Not Recovered/Not Resolved]
  - Blood calcium increased [Recovered/Resolved]
  - Hypotension [Not Recovered/Not Resolved]
  - Unresponsive to stimuli [Recovered/Resolved]
  - Asthenia [Unknown]
  - Syncope [Unknown]
  - Cardiac arrest [Unknown]
  - Renal failure [Not Recovered/Not Resolved]
  - Dyspepsia [Recovered/Resolved]
  - Somnolence [Not Recovered/Not Resolved]
  - Taste disorder [Recovering/Resolving]
  - Diarrhoea [Recovered/Resolved]
  - Rash [Recovered/Resolved]
  - Decreased appetite [Recovering/Resolving]
  - Dysphagia [Recovering/Resolving]
  - Speech disorder [Recovered/Resolved]
  - Feeling abnormal [Recovered/Resolved]
  - Fatigue [Recovered/Resolved]
  - Hypersomnia [Not Recovered/Not Resolved]
  - Muscular weakness [Not Recovered/Not Resolved]
  - Movement disorder [Not Recovered/Not Resolved]
  - Therapeutic response shortened [Unknown]

NARRATIVE: CASE EVENT DATE: 20240510
